FAERS Safety Report 17872085 (Version 1)
Quarter: 2020Q2

REPORT INFORMATION
  Report Type: Spontaneous
  Country: US (occurrence: US)
  Receive Date: 20200608
  Receipt Date: 20200608
  Transmission Date: 20200714
  Serious: No
  Sender: FDA-Public Use
  Company Number: US-BIODELIVERY SCIENCES INTERNATIONAL-2019BDSI0849

PATIENT
  Age: 60 Year
  Sex: Male
  Weight: 118.04 kg

DRUGS (2)
  1. NO DRUG NAME [Concomitant]
     Active Substance: UNSPECIFIED INGREDIENT
     Indication: DIABETES MELLITUS
     Dosage: UNKNOWN; UNKNOWN
     Route: 065
  2. BUPRENORPHINE/NALOXONE [Suspect]
     Active Substance: BUPRENORPHINE\NALOXONE
     Indication: PAIN
     Dosage: 6.3/1 MG; HALF FILM; 3 TIMES A DAY
     Route: 002

REACTIONS (5)
  - Wrong technique in product usage process [Unknown]
  - Off label use [Unknown]
  - Drug effective for unapproved indication [Not Recovered/Not Resolved]
  - Therapeutic response decreased [Not Recovered/Not Resolved]
  - Product use in unapproved indication [Unknown]
